FAERS Safety Report 13770533 (Version 1)
Quarter: 2017Q3

REPORT INFORMATION
  Report Type: Spontaneous
  Country: US (occurrence: US)
  Receive Date: 20170719
  Receipt Date: 20170719
  Transmission Date: 20171127
  Serious: Yes (Disabling)
  Sender: FDA-Public Use
  Company Number: None

PATIENT
  Age: 35 Year
  Sex: Female
  Weight: 123.7 kg

DRUGS (1)
  1. CLONAZEPAM. [Suspect]
     Active Substance: CLONAZEPAM
     Indication: ANXIETY
     Dosage: ?          QUANTITY:1 CAPSULE(S);?
     Route: 048

REACTIONS (9)
  - Nausea [None]
  - Suicidal ideation [None]
  - Pollakiuria [None]
  - Depersonalisation/derealisation disorder [None]
  - Panic attack [None]
  - Withdrawal syndrome [None]
  - Insomnia [None]
  - Neuralgia [None]
  - Psychotic disorder [None]

NARRATIVE: CASE EVENT DATE: 20170228
